FAERS Safety Report 25324927 (Version 1)
Quarter: 2025Q2

REPORT INFORMATION
  Report Type: Spontaneous
  Country: US (occurrence: None)
  Receive Date: 20250516
  Receipt Date: 20250516
  Transmission Date: 20250716
  Serious: Yes (Other)
  Sender: FDA-CTU
  Company Number: None

PATIENT
  Age: 37 Year
  Sex: Female
  Weight: 112.5 kg

DRUGS (1)
  1. PROHANCE [Suspect]
     Active Substance: GADOTERIDOL
     Route: 042

REACTIONS (3)
  - Oral pruritus [None]
  - Ear pruritus [None]
  - Periorbital swelling [None]

NARRATIVE: CASE EVENT DATE: 20250515
